FAERS Safety Report 17317218 (Version 2)
Quarter: 2022Q3

REPORT INFORMATION
  Report Type: Spontaneous
  Country: CA (occurrence: CA)
  Receive Date: 20200124
  Receipt Date: 20220923
  Transmission Date: 20221026
  Serious: Yes (Hospitalization, Other)
  Sender: FDA-Public Use
  Company Number: CA-SHIRE-CA202002135

PATIENT
  Age: 42 Year
  Sex: Male

DRUGS (8)
  1. HUMAN IMMUNOGLOBULIN G [Suspect]
     Active Substance: HUMAN IMMUNOGLOBULIN G
     Indication: Immune thrombocytopenia
     Dosage: UNK
     Route: 042
  2. ALEMTUZUMAB [Suspect]
     Active Substance: ALEMTUZUMAB
     Indication: Relapsing-remitting multiple sclerosis
     Dosage: 12 MILLIGRAM, QD
     Route: 042
     Dates: start: 20181120, end: 20181122
  3. ACETAMINOPHEN [Concomitant]
     Active Substance: ACETAMINOPHEN
     Indication: Product used for unknown indication
     Route: 048
  4. BACLOFEN [Concomitant]
     Active Substance: BACLOFEN
     Indication: Product used for unknown indication
     Dosage: UNK, QD
     Route: 048
  5. CITALOPRAM [Concomitant]
     Active Substance: CITALOPRAM HYDROBROMIDE
     Indication: Product used for unknown indication
     Dosage: UNK, QD
     Route: 048
  6. MAGNESIUM MALATE [Concomitant]
     Active Substance: MAGNESIUM MALATE
     Indication: Product used for unknown indication
     Dosage: UNK, QD
     Route: 048
  7. CHOLECALCIFEROL [Concomitant]
     Active Substance: CHOLECALCIFEROL
     Indication: Product used for unknown indication
     Dosage: UNK, QD
     Route: 048
  8. VITAMINS NOS [Concomitant]
     Active Substance: VITAMINS
     Indication: Product used for unknown indication
     Dosage: UNK, QD
     Route: 048

REACTIONS (10)
  - Cerebral thrombosis [Recovering/Resolving]
  - Contusion [Not Recovered/Not Resolved]
  - Immune thrombocytopenia [Recovering/Resolving]
  - Laboratory test abnormal [Not Recovered/Not Resolved]
  - Muscle spasticity [Not Recovered/Not Resolved]
  - Platelet count decreased [Recovering/Resolving]
  - Pulmonary thrombosis [Recovering/Resolving]
  - Autoimmune haemolytic anaemia [Not Recovered/Not Resolved]
  - Unevaluable event [Not Recovered/Not Resolved]
  - Headache [Not Recovered/Not Resolved]

NARRATIVE: CASE EVENT DATE: 20190101
